FAERS Safety Report 15178157 (Version 1)
Quarter: 2018Q3

REPORT INFORMATION
  Report Type: Spontaneous
  Country: ES (occurrence: ES)
  Receive Date: 20180721
  Receipt Date: 20180721
  Transmission Date: 20181010
  Serious: Yes (Hospitalization)
  Sender: FDA-Public Use
  Company Number: ES-AUROBINDO-AUR-APL-2018-036271

PATIENT
  Age: 21 Year
  Sex: Female

DRUGS (3)
  1. LORAZEPAM. [Suspect]
     Active Substance: LORAZEPAM
     Indication: CELL DEATH
     Dosage: UNK
     Route: 048
     Dates: start: 20161116, end: 20161116
  2. PARACETAMOL CODEINE [Suspect]
     Active Substance: ACETAMINOPHEN\CODEINE PHOSPHATE
     Indication: CELL DEATH
     Dosage: 9 DOSAGE FORM IN TOTAL
     Route: 048
     Dates: start: 20161116, end: 20161116
  3. IBUPROFEN. [Suspect]
     Active Substance: IBUPROFEN
     Indication: CELL DEATH
     Dosage: UNK
     Route: 048
     Dates: start: 20161116, end: 20161116

REACTIONS (1)
  - Hypertransaminasaemia [Recovered/Resolved]

NARRATIVE: CASE EVENT DATE: 20161116
